FAERS Safety Report 5232492-2 (Version None)
Quarter: 2007Q1

REPORT INFORMATION
  Report Type: 
  Country: None (occurrence: None)
  Receive Date: 20070206
  Receipt Date: 20070206
  Transmission Date: 20070707
  Serious: Yes (Other)
  Sender: FDA-Public Use
  Company Number: None

PATIENT
  Age: 19 Year
  Sex: Female
  Weight: 67.1324 kg

DRUGS (2)
  1. HYDROMET COUGH MEDICINE [Suspect]
     Indication: COUGH
  2. ZOLOFT [Suspect]

REACTIONS (2)
  - INTERCEPTED DRUG DISPENSING ERROR [None]
  - WRONG DRUG ADMINISTERED [None]
